FAERS Safety Report 7014921-7 (Version None)
Quarter: 2010Q3

REPORT INFORMATION
  Report Type: 
  Country: None (occurrence: None)
  Receive Date: 20100927
  Receipt Date: 20091006
  Transmission Date: 20110219
  Serious: No
  Sender: FDA-Public Use
  Company Number: US-ASTRAZENECA-2009SE18651

PATIENT

DRUGS (3)
  1. ARIMIDEX [Suspect]
     Route: 048
  2. PULMICORT FLEXHALER [Suspect]
     Route: 055
  3. TOPROL-XL [Suspect]
     Route: 048

REACTIONS (1)
  - ILL-DEFINED DISORDER [None]
